FAERS Safety Report 20015397 (Version 1)
Quarter: 2021Q4

REPORT INFORMATION
  Report Type: Spontaneous
  Country: US (occurrence: None)
  Receive Date: 20211029
  Receipt Date: 20211029
  Transmission Date: 20220303
  Serious: Yes (Hospitalization)
  Sender: FDA-Public Use
  Company Number: None

PATIENT
  Age: 60 Year
  Sex: Male

DRUGS (2)
  1. NAPROXEN [Suspect]
     Active Substance: NAPROXEN
     Indication: Pain
     Dosage: FREQUENCY : TWICE A DAY;?
     Route: 048
     Dates: start: 20211018, end: 20211019
  2. ACETAMINOPHEN [Suspect]
     Active Substance: ACETAMINOPHEN
     Indication: Pain
     Dosage: OTHER QUANTITY : 500-1000 MG;?FREQUENCY : DAILY;?
     Route: 048
     Dates: start: 20150903

REACTIONS (2)
  - Thrombocytopenia [None]
  - Vitamin C deficiency [None]

NARRATIVE: CASE EVENT DATE: 20211019
